FAERS Safety Report 7476499-3 (Version None)
Quarter: 2011Q2

REPORT INFORMATION
  Report Type: 
  Country: None (occurrence: None)
  Receive Date: 20110512
  Receipt Date: 20110422
  Transmission Date: 20111010
  Serious: No
  Sender: FDA-Public Use
  Company Number: US-B.I. PHARMACEUTICALS,INC./RIDGEFIELD-2011-BP-07595BP

PATIENT
  Sex: Female

DRUGS (6)
  1. NEURONTIN [Concomitant]
  2. KIONPIN/CLONAZEPAM [Concomitant]
  3. PRADAXA [Suspect]
     Indication: ANTICOAGULANT THERAPY
  4. CYMBALTA [Concomitant]
  5. DILANTIN/PHENYTON SODIUM [Concomitant]
  6. ZONEGRAN [Concomitant]

REACTIONS (1)
  - PAIN IN EXTREMITY [None]
